FAERS Safety Report 8044675-7 (Version None)
Quarter: 2011Q4

REPORT INFORMATION
  Report Type: 
  Country: None (occurrence: None)
  Receive Date: 20111202
  Receipt Date: 20110411
  Transmission Date: 20120403
  Serious: Yes (Hospitalization, Disabling, Other)
  Sender: FDA-Public Use
  Company Number: 2011SP016071

PATIENT
  Age: 27 Year
  Sex: Female
  Weight: 56.6996 kg

DRUGS (6)
  1. ALBUTEROL [Concomitant]
  2. PREDNISONE 06/--/2009 - 07/20/2009 [Concomitant]
  3. CLARITIN [Concomitant]
  4. MULTI-VITAMIN [Concomitant]
  5. NUVARING [Suspect]
     Indication: CONTRACEPTION
     Dates: start: 20090301, end: 20090720
  6. FLEXERIL [Concomitant]

REACTIONS (10)
  - SYSTEMIC LUPUS ERYTHEMATOSUS [None]
  - ATELECTASIS [None]
  - ABDOMINAL PAIN [None]
  - PRURITUS [None]
  - ARTHRITIS [None]
  - DEPRESSION [None]
  - PULMONARY EMBOLISM [None]
  - NAUSEA [None]
  - OEDEMA PERIPHERAL [None]
  - VAGINAL DISCHARGE [None]
